FAERS Safety Report 16090434 (Version 1)
Quarter: 2019Q1

REPORT INFORMATION
  Report Type: Spontaneous
  Country: US (occurrence: US)
  Receive Date: 20190319
  Receipt Date: 20190319
  Transmission Date: 20190418
  Serious: No
  Sender: FDA-Public Use
  Company Number: US-PFIZER INC-2016392982

PATIENT
  Age: 59 Year
  Sex: Female
  Weight: 120.2 kg

DRUGS (7)
  1. LYRICA [Suspect]
     Active Substance: PREGABALIN
     Indication: NEURALGIA
     Dosage: 100 MG, 3X/DAY (90 DAYS)
     Route: 048
     Dates: start: 20160815
  2. TRULICITY [Concomitant]
     Active Substance: DULAGLUTIDE
     Dosage: UNK, WEEKLY
  3. LEVEMIR [Concomitant]
     Active Substance: INSULIN DETEMIR
     Dosage: 17 IU, 1X/DAY (AT NIGHT)
  4. LEVEMIR [Concomitant]
     Active Substance: INSULIN DETEMIR
     Dosage: 30 IU, 1X/DAY (AT NIGHT)
  5. NOVOLOG [Concomitant]
     Active Substance: INSULIN ASPART
     Dosage: 30 IU, UNK (WITH MEALS)
  6. LYRICA [Suspect]
     Active Substance: PREGABALIN
     Indication: BURNING SENSATION
  7. NOVOLOG [Concomitant]
     Active Substance: INSULIN ASPART
     Dosage: 17 IU, UNK (WITH MEALS)

REACTIONS (2)
  - Depressed mood [Unknown]
  - Pruritus [Unknown]
